FAERS Safety Report 5866533-6 (Version None)
Quarter: 2008Q3

REPORT INFORMATION
  Report Type: 
  Country: None (occurrence: None)
  Receive Date: 20080902
  Receipt Date: 20080902
  Transmission Date: 20090109
  Serious: Yes (Hospitalization)
  Sender: FDA-Public Use
  Company Number: PHEH1995US03722

PATIENT
  Sex: Male
  Weight: 105 kg

DRUGS (5)
  1. NEORAL [Suspect]
  2. IMURAN [Concomitant]
  3. PREDNISONE TAB [Concomitant]
  4. ZANTAC [Concomitant]
  5. MAGNESIUM OXIDE [Concomitant]

REACTIONS (7)
  - ABSCESS [None]
  - BACTERIAL INFECTION [None]
  - CHILLS [None]
  - HEADACHE [None]
  - LEUKOCYTOSIS [None]
  - PYREXIA [None]
  - SEPSIS [None]
